FAERS Safety Report 5658690-1 (Version None)
Quarter: 2008Q1

REPORT INFORMATION
  Report Type: 
  Country: None (occurrence: None)
  Receive Date: 20080310
  Receipt Date: 20070326
  Transmission Date: 20080703
  Serious: No
  Sender: FDA-Public Use
  Company Number: US-BAYER-200710928BCC

PATIENT
  Age: 32 Year
  Sex: Female
  Weight: 82 kg

DRUGS (1)
  1. ALEVE [Suspect]
     Indication: BACK PAIN
     Dosage: TOTAL DAILY DOSE: 440 MG  UNIT DOSE: 220 MG
     Route: 048
     Dates: start: 20070324, end: 20070324

REACTIONS (6)
  - BLOOD PRESSURE ABNORMAL [None]
  - ERYTHEMA [None]
  - HEART RATE DECREASED [None]
  - HYPERSENSITIVITY [None]
  - PRURITUS [None]
  - SKIN IRRITATION [None]
